FAERS Safety Report 7109793-6 (Version None)
Quarter: 2010Q4

REPORT INFORMATION
  Report Type: 
  Country: None (occurrence: None)
  Receive Date: 20101116
  Receipt Date: 20101116
  Transmission Date: 20110411
  Serious: Yes (Life-Threatening)
  Sender: FDA-Public Use
  Company Number: None

PATIENT
  Age: 86 Year
  Sex: Male

DRUGS (1)
  1. COUMADIN [Suspect]
     Dosage: 5 MG Q MWF, 7.5 QTTSS
     Dates: end: 20100730

REACTIONS (1)
  - INTERNATIONAL NORMALISED RATIO INCREASED [None]
